FAERS Safety Report 25041890 (Version 1)
Quarter: 2025Q1

REPORT INFORMATION
  Report Type: Spontaneous
  Country: US (occurrence: US)
  Receive Date: 20250305
  Receipt Date: 20250305
  Transmission Date: 20250408
  Serious: Yes (Hospitalization)
  Sender: MYLAN
  Company Number: US-Merck KGaA-6028356

PATIENT
  Age: 27 Month
  Sex: Female

DRUGS (1)
  1. ACETAMINOPHEN [Suspect]
     Active Substance: ACETAMINOPHEN
     Indication: Product used for unknown indication

REACTIONS (3)
  - Metabolic acidosis [Recovered/Resolved]
  - Coma [Recovered/Resolved]
  - Accidental overdose [Recovered/Resolved]
